FAERS Safety Report 5011591-4 (Version None)
Quarter: 2006Q2

REPORT INFORMATION
  Report Type: 
  Country: None (occurrence: None)
  Receive Date: 20060524
  Receipt Date: 20060516
  Transmission Date: 20061013
  Serious: Yes (Other)
  Sender: FDA-Public Use
  Company Number: 2006065060

PATIENT
  Sex: Male

DRUGS (1)
  1. VISINE EYE DROPS [Suspect]
     Dosage: OPHTHALMIC
     Route: 047
     Dates: start: 20060101

REACTIONS (2)
  - BLINDNESS UNILATERAL [None]
  - EYE IRRITATION [None]
